FAERS Safety Report 4801891-2 (Version None)
Quarter: 2005Q4

REPORT INFORMATION
  Report Type: 
  Country: None (occurrence: None)
  Receive Date: 20051011
  Receipt Date: 20050928
  Transmission Date: 20060501
  Serious: Yes (Death)
  Sender: FDA-Public Use
  Company Number: 2005019995

PATIENT
  Age: 80 Year
  Sex: Male
  Weight: 73.4827 kg

DRUGS (10)
  1. LOMOTIL [Suspect]
     Indication: FREQUENT BOWEL MOVEMENTS
     Dosage: 2.5 MG (2.5 MG, 1 IN 1 AS NECESSARY), ORAL
     Route: 048
     Dates: start: 20040101
  2. CHEMOTHERAPY NOS (CHEMOTHERAPY NOS) [Concomitant]
  3. MULTIVITAMIN [Concomitant]
  4. RETINOL (RETINOL) [Concomitant]
  5. VITAMIN C (VITAMIN C) [Concomitant]
  6. SYNTHROID [Concomitant]
  7. WARFARIN SODIUM [Concomitant]
  8. HYDROCHLOROTHIAZIDE [Concomitant]
  9. COMPAZINE [Concomitant]
  10. DEXAMETHASONE [Concomitant]

REACTIONS (2)
  - DIARRHOEA [None]
  - GASTROINTESTINAL MOTILITY DISORDER [None]
